FAERS Safety Report 5390137-5 (Version None)
Quarter: 2007Q3

REPORT INFORMATION
  Report Type: 
  Country: None (occurrence: None)
  Receive Date: 20070716
  Receipt Date: 20070716
  Transmission Date: 20080115
  Serious: No
  Sender: FDA-Public Use
  Company Number: None

PATIENT
  Age: 54 Year
  Sex: Female
  Weight: 63.5036 kg

DRUGS (1)
  1. ZICAM [Suspect]
     Indication: NASOPHARYNGITIS
     Dosage: 1 SWAB COUPLE OF TIMES/DA NASAL
     Route: 045
     Dates: start: 20070324, end: 20070403

REACTIONS (2)
  - AGEUSIA [None]
  - ANOSMIA [None]
